FAERS Safety Report 20323674 (Version 1)
Quarter: 2022Q1

REPORT INFORMATION
  Report Type: Spontaneous
  Country: US (occurrence: US)
  Receive Date: 20220111
  Receipt Date: 20220111
  Transmission Date: 20220423
  Serious: Yes (Other)
  Sender: FDA-Public Use
  Company Number: US-BRISTOL-MYERS SQUIBB COMPANY-BMS-2022-001784

PATIENT

DRUGS (1)
  1. KENALOG-10 [Suspect]
     Active Substance: TRIAMCINOLONE ACETONIDE
     Indication: Product used for unknown indication
     Dosage: STRENTH 50MG/5ML, DOSAGE FORM 5ML MULTIPLE DOSE VIAL
     Route: 065

REACTIONS (2)
  - Arthritis infective [Unknown]
  - Product container seal issue [Unknown]
